FAERS Safety Report 7320843-4 (Version None)
Quarter: 2011Q1

REPORT INFORMATION
  Report Type: 
  Country: None (occurrence: None)
  Receive Date: 20110228
  Receipt Date: 20110216
  Transmission Date: 20110831
  Serious: Yes (Other)
  Sender: FDA-Public Use
  Company Number: FR-ROCHE-760735

PATIENT
  Age: 7 Year
  Sex: Female

DRUGS (2)
  1. VALIUM [Suspect]
     Indication: MYOCLONIC EPILEPSY
     Dosage: DOSE AND FREQUENCY WAS NOT REPORTED.
     Route: 065
  2. URBANYL [Concomitant]

REACTIONS (3)
  - DRUG INTOLERANCE [None]
  - EPILEPSY [None]
  - VOMITING [None]
